FAERS Safety Report 5607469-5 (Version None)
Quarter: 2008Q1

REPORT INFORMATION
  Report Type: 
  Country: None (occurrence: None)
  Receive Date: 20080130
  Receipt Date: 20080122
  Transmission Date: 20080703
  Serious: Yes (Hospitalization)
  Sender: FDA-Public Use
  Company Number: CA-ASTRAZENECA-2008UW01869

PATIENT
  Age: 57 Year
  Sex: Female

DRUGS (6)
  1. CRESTOR [Suspect]
     Indication: HYPERCHOLESTEROLAEMIA
     Route: 048
     Dates: start: 20070101
  2. RANITIDINE [Concomitant]
  3. BISOPROLOL [Concomitant]
  4. PHENYTOIN [Concomitant]
  5. RISPERIDONE [Concomitant]
  6. TYLENOL W/ CODEINE NO. 3 [Concomitant]

REACTIONS (2)
  - BILE DUCT OBSTRUCTION [None]
  - HEPATIC ENZYME INCREASED [None]
